FAERS Safety Report 19014723 (Version 2)
Quarter: 2021Q2

REPORT INFORMATION
  Report Type: Spontaneous
  Country: US (occurrence: US)
  Receive Date: 20210316
  Receipt Date: 20210428
  Transmission Date: 20210717
  Serious: Yes (Other)
  Sender: FDA-Public Use
  Company Number: US-ASTRAZENECA-2021A121857

PATIENT
  Age: 73 Year
  Sex: Male
  Weight: 81.6 kg

DRUGS (4)
  1. SYMBICORT [Suspect]
     Active Substance: BUDESONIDE\FORMOTEROL FUMARATE DIHYDRATE
     Indication: CHRONIC OBSTRUCTIVE PULMONARY DISEASE
     Dosage: 2 PUFFS, TWICE A DAY
     Route: 055
     Dates: end: 202103
  2. BREZTRI AEROSPHERE [Suspect]
     Active Substance: BUDESONIDE\FORMOTEROL\GLYCOPYRRONIUM
     Indication: ASTHMA
     Dosage: 160 MCG?9 MCG?4.8 MCG, 2 PUFFS, TWICE A DAY
     Route: 055
     Dates: start: 202103
  3. BREZTRI AEROSPHERE [Suspect]
     Active Substance: BUDESONIDE\FORMOTEROL\GLYCOPYRRONIUM
     Indication: CHRONIC OBSTRUCTIVE PULMONARY DISEASE
     Dosage: 160 MCG?9 MCG?4.8 MCG, 2 PUFFS, TWICE A DAY
     Route: 055
     Dates: start: 202103
  4. SYMBICORT [Suspect]
     Active Substance: BUDESONIDE\FORMOTEROL FUMARATE DIHYDRATE
     Indication: ASTHMA
     Dosage: 2 PUFFS, TWICE A DAY
     Route: 055
     Dates: end: 202103

REACTIONS (5)
  - Lung neoplasm malignant [Unknown]
  - Product dose omission issue [Unknown]
  - Pulmonary thrombosis [Unknown]
  - Drug delivery system issue [Unknown]
  - Intentional device misuse [Unknown]

NARRATIVE: CASE EVENT DATE: 2019
